FAERS Safety Report 7520725-9 (Version None)
Quarter: 2011Q2

REPORT INFORMATION
  Report Type: 
  Country: None (occurrence: None)
  Receive Date: 20110603
  Receipt Date: 20101207
  Transmission Date: 20111010
  Serious: Yes (Hospitalization)
  Sender: FDA-Public Use
  Company Number: JP-BAYER-200811001BYL

PATIENT
  Age: 65 Year
  Sex: Male
  Weight: 54 kg

DRUGS (9)
  1. ALLOPURINOL [Concomitant]
     Indication: PRODUCT USED FOR UNKNOWN INDICATION
     Route: 048
  2. TRICHLORMETHIAZIDE [Concomitant]
     Indication: HYPERTENSION
     Route: 048
  3. NEXAVAR [Suspect]
     Indication: RENAL CELL CARCINOMA STAGE IV
     Dosage: 800 MG, QD
     Route: 048
     Dates: start: 20080331, end: 20080414
  4. NEXAVAR [Suspect]
     Dosage: 400 MG, QD
     Route: 048
     Dates: start: 20080428, end: 20080606
  5. FAMOTIDINE [Concomitant]
     Indication: PRODUCT USED FOR UNKNOWN INDICATION
     Route: 048
  6. NEXAVAR [Suspect]
     Dosage: 400 MG, QOD
     Route: 048
     Dates: start: 20080701
  7. CANDESARTAN CILEXETIL [Concomitant]
  8. CANDESARTAN CILEXETIL [Concomitant]
     Indication: HYPERTENSION
     Route: 048
  9. TRICHLORMETHIAZIDE [Concomitant]
     Indication: PALMAR-PLANTAR ERYTHRODYSAESTHESIA SYNDROME

REACTIONS (9)
  - RASH [None]
  - HEPATIC FUNCTION ABNORMAL [None]
  - BLOOD AMYLASE INCREASED [None]
  - CONSTIPATION [None]
  - HYPERTENSION [None]
  - PALPITATIONS [None]
  - PALMAR-PLANTAR ERYTHRODYSAESTHESIA SYNDROME [None]
  - LIPASE INCREASED [None]
  - STOMATITIS [None]
